FAERS Safety Report 14186294 (Version 9)
Quarter: 2019Q1

REPORT INFORMATION
  Report Type: Spontaneous
  Country: US (occurrence: US)
  Receive Date: 20171114
  Receipt Date: 20190322
  Transmission Date: 20190417
  Serious: Yes (Hospitalization, Other)
  Sender: FDA-Public Use
  Company Number: US-ASTRAZENECA-2017SF15258

PATIENT
  Sex: Female
  Weight: 51.7 kg

DRUGS (9)
  1. DALIRESP [Suspect]
     Active Substance: ROFLUMILAST
     Indication: CHRONIC OBSTRUCTIVE PULMONARY DISEASE
     Dosage: 500 MCG ONE TABLET CRUSHED AND TOOK VIA HER TUBE IN HER STOMACH DAILY AT BEDTIME
     Route: 048
  2. TUDORZA PRESSAIR [Suspect]
     Active Substance: ACLIDINIUM BROMIDE
     Indication: EMPHYSEMA
     Dosage: 400 MCG ONE INHALATION TWICE A DAY
     Route: 055
     Dates: start: 2016
  3. OXYGEN. [Concomitant]
     Active Substance: OXYGEN
     Dosage: 2.5 L, CONTINUOUSLY VIA NASAL CANNULA
     Route: 045
  4. DALIRESP [Suspect]
     Active Substance: ROFLUMILAST
     Indication: CHRONIC OBSTRUCTIVE PULMONARY DISEASE
     Dosage: 500 MCG ONE TABLET CRUSHED AND TOOK VIA HER TUBE IN HER STOMACH DAILY AT BEDTIME
     Route: 048
  5. TUDORZA PRESSAIR [Suspect]
     Active Substance: ACLIDINIUM BROMIDE
     Indication: CHRONIC OBSTRUCTIVE PULMONARY DISEASE
     Dosage: 400 MCG ONE INHALATION TWICE A DAY
     Route: 055
     Dates: start: 2016
  6. B12  INJECTIONS [Concomitant]
     Indication: ANAEMIA
     Dosage: MONTHLY
  7. TUDORZA PRESSAIR [Suspect]
     Active Substance: ACLIDINIUM BROMIDE
     Indication: EMPHYSEMA
     Route: 055
     Dates: start: 20190123
  8. TUDORZA PRESSAIR [Suspect]
     Active Substance: ACLIDINIUM BROMIDE
     Indication: CHRONIC OBSTRUCTIVE PULMONARY DISEASE
     Route: 055
     Dates: start: 20190123
  9. ALBUTEROL. [Concomitant]
     Active Substance: ALBUTEROL
     Indication: EMERGENCY CARE

REACTIONS (18)
  - Loss of personal independence in daily activities [Unknown]
  - Bronchitis [Recovered/Resolved]
  - Total lung capacity decreased [Not Recovered/Not Resolved]
  - Device issue [Unknown]
  - Anaemia [Not Recovered/Not Resolved]
  - Diarrhoea [Recovered/Resolved]
  - Nervousness [Not Recovered/Not Resolved]
  - Pneumonia aspiration [Unknown]
  - Aspiration [Not Recovered/Not Resolved]
  - Hypophagia [Not Recovered/Not Resolved]
  - Intentional device misuse [Not Recovered/Not Resolved]
  - Emphysema [Unknown]
  - Asthenia [Unknown]
  - Chronic obstructive pulmonary disease [Unknown]
  - Product dose omission [Unknown]
  - Dyspnoea [Not Recovered/Not Resolved]
  - Dysphagia [Not Recovered/Not Resolved]
  - Anxiety [Not Recovered/Not Resolved]
